FAERS Safety Report 4476496-6 (Version None)
Quarter: 2004Q4

REPORT INFORMATION
  Report Type: 
  Country: None (occurrence: None)
  Receive Date: 20041012
  Receipt Date: 20040927
  Transmission Date: 20050328
  Serious: Yes (Hospitalization)
  Sender: FDA-Public Use
  Company Number: 2004071914

PATIENT
  Sex: Female

DRUGS (1)
  1. NARDIL [Suspect]
     Indication: ILL-DEFINED DISORDER

REACTIONS (3)
  - CARCINOMA [None]
  - PHARYNGOLARYNGEAL PAIN [None]
  - SPEECH DISORDER [None]
